FAERS Safety Report 5307740-0 (Version None)
Quarter: 2007Q2

REPORT INFORMATION
  Report Type: 
  Country: None (occurrence: None)
  Receive Date: 20070418
  Receipt Date: 20070403
  Transmission Date: 20071010
  Serious: Yes (Other)
  Sender: FDA-Public Use
  Company Number: US-1160230

PATIENT
  Age: 70 Year
  Sex: Female

DRUGS (4)
  1. NEVANAC [Suspect]
     Indication: SURGERY
     Dosage: (OPTHALMIC) ;
     Route: 047
  2. SYSTANE [Concomitant]
  3. VIGAMOX [Concomitant]
  4. ECONOPRED [Concomitant]

REACTIONS (4)
  - BIPOLAR DISORDER [None]
  - BLOOD PRESSURE INCREASED [None]
  - PYREXIA [None]
  - REFUSAL OF TREATMENT BY PATIENT [None]
